FAERS Safety Report 13131441 (Version 4)
Quarter: 2017Q1

REPORT INFORMATION
  Report Type: Spontaneous
  Country: US (occurrence: US)
  Receive Date: 20170119
  Receipt Date: 20170317
  Transmission Date: 20170428
  Serious: No
  Sender: FDA-Public Use
  Company Number: US-PFIZER INC-2017023583

PATIENT
  Age: 53 Year
  Sex: Male

DRUGS (6)
  1. DEPO-TESTOSTERONE [Suspect]
     Active Substance: TESTOSTERONE CYPIONATE
     Indication: HORMONE REPLACEMENT THERAPY
     Dosage: 1 ML, WEEKLY (EVERY 7 DAYS)
     Route: 030
     Dates: start: 2014
  2. DEPO-TESTOSTERONE [Suspect]
     Active Substance: TESTOSTERONE CYPIONATE
     Indication: BLOOD TESTOSTERONE DECREASED
     Dosage: 1 ML, WEEKLY (EVERY 7 DAYS)
     Route: 030
     Dates: start: 201303
  3. DEPO-TESTOSTERONE [Suspect]
     Active Substance: TESTOSTERONE CYPIONATE
     Dosage: 1 ML, WEEKLY, (EVERY 7 DAYS)
     Route: 030
     Dates: start: 20161105
  4. DEPO-TESTOSTERONE [Suspect]
     Active Substance: TESTOSTERONE CYPIONATE
     Dosage: 1 ML, WEEKLY (EVERY 7 DAYS)
     Route: 030
     Dates: start: 20170106
  5. DEPO-TESTOSTERONE [Suspect]
     Active Substance: TESTOSTERONE CYPIONATE
     Dosage: 1 ML, WEEKLY (EVERY 7 DAYS)
     Route: 030
     Dates: start: 20170113
  6. DEPO-TESTOSTERONE [Suspect]
     Active Substance: TESTOSTERONE CYPIONATE
     Dosage: 1 ML, WEEKLY, (EVERY 7 DAYS)
     Route: 030
     Dates: start: 20160328

REACTIONS (4)
  - Injection site pain [Recovered/Resolved]
  - Poor quality drug administered [Unknown]
  - Myalgia [Recovered/Resolved]
  - Product deposit [Unknown]

NARRATIVE: CASE EVENT DATE: 20170106
